FAERS Safety Report 23968623 (Version 1)
Quarter: 2024Q2

REPORT INFORMATION
  Report Type: Spontaneous
  Country: US (occurrence: US)
  Receive Date: 20240612
  Receipt Date: 20240612
  Transmission Date: 20240716
  Serious: No
  Sender: FDA-Public Use
  Company Number: US-MYLANLABS-2024M1052431

PATIENT
  Age: 48 Year
  Sex: Male

DRUGS (1)
  1. EPINEPHRINE [Suspect]
     Active Substance: EPINEPHRINE
     Indication: Food allergy
     Dosage: UNK
     Route: 065

REACTIONS (2)
  - Liquid product physical issue [None]
  - Product quality issue [None]

NARRATIVE: CASE EVENT DATE: 20240605
